FAERS Safety Report 5406462-5 (Version None)
Quarter: 2007Q3

REPORT INFORMATION
  Report Type: 
  Country: None (occurrence: None)
  Receive Date: 20070713
  Receipt Date: 20070514
  Transmission Date: 20080115
  Serious: Yes (Hospitalization)
  Sender: FDA-Public Use
  Company Number: US-JNJFOC-20070504305

PATIENT
  Age: 20 Year
  Sex: Female
  Weight: 74.8435 kg

DRUGS (2)
  1. ORTHO EVRA [Suspect]
     Indication: DRUG USE FOR UNKNOWN INDICATION
     Dosage: TRANSDRMAL
     Route: 062
  2. ACETAMINOPHEN [Concomitant]

REACTIONS (1)
  - PULMONARY EMBOLISM [None]
